FAERS Safety Report 21789313 (Version 1)
Quarter: 2022Q4

REPORT INFORMATION
  Report Type: Spontaneous
  Country: US (occurrence: None)
  Receive Date: 20221227
  Receipt Date: 20221227
  Transmission Date: 20230113
  Serious: Yes (Other)
  Sender: FDA-Public Use
  Company Number: None

PATIENT
  Age: 26 Year
  Sex: Female
  Weight: 144 kg

DRUGS (4)
  1. OXCARBAZEPINE [Suspect]
     Active Substance: OXCARBAZEPINE
     Indication: Bipolar disorder
     Dates: start: 20220622, end: 20221102
  2. ALEVE [Concomitant]
     Active Substance: NAPROXEN SODIUM
  3. BENADRYL [Concomitant]
     Active Substance: DIPHENHYDRAMINE HYDROCHLORIDE
  4. daily multi vitamin [Concomitant]

REACTIONS (8)
  - Mania [None]
  - Logorrhoea [None]
  - Aggression [None]
  - Gastritis [None]
  - Therapy interrupted [None]
  - Seizure [None]
  - Psychotic disorder [None]
  - Hallucinations, mixed [None]

NARRATIVE: CASE EVENT DATE: 20221101
